FAERS Safety Report 10074171 (Version 1)
Quarter: 2014Q2

REPORT INFORMATION
  Report Type: Spontaneous
  Country: US (occurrence: US)
  Receive Date: 20140411
  Receipt Date: 20140411
  Transmission Date: 20141212
  Serious: Yes (Hospitalization)
  Sender: FDA-Public Use
  Company Number: US-TARO-2014P1002909

PATIENT
  Age: 55 Year
  Sex: Male
  Weight: 104.1 kg

DRUGS (12)
  1. IMIQUIMOD [Suspect]
     Indication: ACTINIC KERATOSIS
     Route: 061
     Dates: start: 20140203
  2. TAMIFLU [Concomitant]
     Route: 048
     Dates: start: 20130128, end: 20130130
  3. PRILOSEC [Concomitant]
     Route: 048
     Dates: start: 2010
  4. AMLODIPINE [Concomitant]
     Route: 048
     Dates: start: 2005
  5. FUROSEMIDE [Concomitant]
     Route: 048
     Dates: start: 2005
  6. LISINOPRIL [Concomitant]
     Route: 048
     Dates: start: 2005
  7. CLONIDINE [Concomitant]
     Route: 048
     Dates: start: 2005
  8. DILTIAZEM [Concomitant]
  9. PANTOPRAZOLE [Concomitant]
  10. SIMVASTATIN [Concomitant]
  11. WARFARIN [Concomitant]
     Dates: start: 20100907
  12. WARFARIN [Concomitant]
     Dates: start: 20100907

REACTIONS (1)
  - Dysarthria [Recovered/Resolved]
